FAERS Safety Report 16466720 (Version 2)
Quarter: 2020Q3

REPORT INFORMATION
  Report Type: Report from Study
  Country: GB (occurrence: GB)
  Receive Date: 20190623
  Receipt Date: 20190730
  Transmission Date: 20201104
  Serious: Yes (Hospitalization)
  Sender: FDA-Public Use
  Company Number: GB-JNJFOC-20190519265

PATIENT
  Age: 64 Year
  Sex: Male

DRUGS (10)
  1. LANSOPRAZOLE. [Concomitant]
     Active Substance: LANSOPRAZOLE
     Indication: GASTRIC PH DECREASED
     Route: 048
     Dates: start: 20190115
  2. ORAMORPH [Concomitant]
     Active Substance: MORPHINE SULFATE
  3. ZOMORPH [Concomitant]
     Active Substance: MORPHINE SULFATE
  4. PARACETAMOL [Concomitant]
     Active Substance: ACETAMINOPHEN
  5. LAXIDO [Concomitant]
     Active Substance: POLYETHYLENE GLYCOL 3350\POTASSIUM CHLORIDE\SODIUM BICARBONATE\SODIUM CHLORIDE
     Indication: CONSTIPATION
     Route: 048
     Dates: start: 20190115
  6. METOCLOPRAMIDE. [Concomitant]
     Active Substance: METOCLOPRAMIDE
     Indication: NAUSEA
     Dates: start: 20190204
  7. LEVETIRACETAM. [Concomitant]
     Active Substance: LEVETIRACETAM
  8. CYCLIZINE [Concomitant]
     Active Substance: CYCLIZINE
     Indication: NAUSEA
     Dates: start: 20190204
  9. IBRUTINIB [Suspect]
     Active Substance: IBRUTINIB
     Indication: ADENOCARCINOMA GASTRIC
     Route: 048
     Dates: start: 20190430, end: 20190506
  10. DOCETAXEL. [Suspect]
     Active Substance: DOCETAXEL
     Indication: ADENOCARCINOMA GASTRIC
     Route: 042
     Dates: start: 20190430

REACTIONS (1)
  - Neutropenic sepsis [Recovered/Resolved]

NARRATIVE: CASE EVENT DATE: 20190507
